FAERS Safety Report 24040066 (Version 1)
Quarter: 2024Q3

REPORT INFORMATION
  Report Type: Spontaneous
  Country: US (occurrence: US)
  Receive Date: 20240702
  Receipt Date: 20240702
  Transmission Date: 20241016
  Serious: Yes (Other)
  Sender: AUROBINDO
  Company Number: US-AUROBINDO-AUR-APL-2024-031778

PATIENT
  Age: 5 Day
  Sex: Male
  Weight: 2.7 kg

DRUGS (1)
  1. ADENOSINE [Suspect]
     Active Substance: ADENOSINE
     Indication: Product used for unknown indication
     Dosage: 0.3 MILLIGRAM/KILOGRAM
     Route: 042

REACTIONS (1)
  - Cardiac arrest [Unknown]
